FAERS Safety Report 14627482 (Version 1)
Quarter: 2018Q1

REPORT INFORMATION
  Report Type: Spontaneous
  Country: LU (occurrence: LU)
  Receive Date: 20180312
  Receipt Date: 20180312
  Transmission Date: 20180509
  Serious: Yes (Hospitalization, Other)
  Sender: FDA-Public Use
  Company Number: LU-PFIZER INC-2018096661

PATIENT
  Age: 79 Year
  Sex: Male
  Weight: 110 kg

DRUGS (11)
  1. LASIX [Concomitant]
     Active Substance: FUROSEMIDE
  2. SINTROM [Concomitant]
     Active Substance: ACENOCOUMAROL
  3. PACLITAXEL TEVA [Suspect]
     Active Substance: PACLITAXEL
     Dosage: 45 MG/M2, WEEKLY
     Route: 041
     Dates: start: 20180206, end: 20180206
  4. RANITIDINE BASE [Concomitant]
     Active Substance: RANITIDINE HYDROCHLORIDE
     Indication: PREMEDICATION
     Dosage: UNK
     Dates: start: 20180206, end: 20180206
  5. CARBOPLATIN. [Suspect]
     Active Substance: CARBOPLATIN
     Dosage: UNK
     Route: 041
     Dates: start: 20180206, end: 20180206
  6. TAMSULOSINE [Concomitant]
     Active Substance: TAMSULOSIN HYDROCHLORIDE
  7. METHYLPREDNISOLONE. [Concomitant]
     Active Substance: METHYLPREDNISOLONE
     Indication: PREMEDICATION
     Route: 051
     Dates: start: 20180206, end: 20180206
  8. TEMESTA (LORAZEPAM) [Concomitant]
     Active Substance: LORAZEPAM
  9. JANUMET [Concomitant]
     Active Substance: METFORMIN HYDROCHLORIDE\SITAGLIPTIN PHOSPHATE
  10. TORASEMIDE [Concomitant]
     Active Substance: TORSEMIDE
  11. DIGOXINE [Concomitant]
     Active Substance: DIGOXIN

REACTIONS (3)
  - Erythema [Recovering/Resolving]
  - Vertigo [Recovering/Resolving]
  - Hypoxia [Recovering/Resolving]

NARRATIVE: CASE EVENT DATE: 20180206
